FAERS Safety Report 10678819 (Version 1)
Quarter: 2014Q4

REPORT INFORMATION
  Report Type: Spontaneous
  Country: US (occurrence: US)
  Receive Date: 20141229
  Receipt Date: 20141229
  Transmission Date: 20150529
  Serious: No
  Sender: FDA-Public Use
  Company Number: US-PFIZER INC-2014356132

PATIENT
  Sex: Female

DRUGS (4)
  1. LEVAQUIN [Suspect]
     Active Substance: LEVOFLOXACIN
     Dosage: UNK
     Dates: start: 20041106, end: 20041115
  2. FLAGYL [Suspect]
     Active Substance: METRONIDAZOLE\METRONIDAZOLE HYDROCHLORIDE
     Dosage: UNK
     Dates: start: 19991028, end: 19991103
  3. COLAZAL [Suspect]
     Active Substance: BALSALAZIDE DISODIUM
     Dosage: UNK
     Dates: start: 20020731, end: 20020821
  4. TOPAMAX [Suspect]
     Active Substance: TOPIRAMATE
     Dosage: UNK
     Dates: start: 20030318, end: 20030412

REACTIONS (1)
  - Drug hypersensitivity [Unknown]
